FAERS Safety Report 16318826 (Version 5)
Quarter: 2024Q4

REPORT INFORMATION
  Report Type: Spontaneous
  Country: FR (occurrence: FR)
  Receive Date: 20190516
  Receipt Date: 20241210
  Transmission Date: 20250115
  Serious: Yes (Life-Threatening, Hospitalization, Other)
  Sender: AUROBINDO
  Company Number: FR-AUROBINDO-AUR-APL-2019-026816

PATIENT
  Age: 39 Year
  Sex: Female

DRUGS (6)
  1. ALPRAZOLAM [Suspect]
     Active Substance: ALPRAZOLAM
     Indication: Product used for unknown indication
     Dosage: 20 MILLIGRAM,1 TOTAL
     Route: 048
  2. VALPROIC ACID [Suspect]
     Active Substance: VALPROIC ACID
     Indication: Product used for unknown indication
     Dosage: 19 GRAM,1 TOTAL
     Route: 048
  3. VALPROIC ACID [Suspect]
     Active Substance: VALPROIC ACID
     Dosage: 18.5 GRAM
     Route: 065
  4. DIAZEPAM [Suspect]
     Active Substance: DIAZEPAM
     Indication: Product used for unknown indication
     Dosage: 100 MILLIGRAM,1 TOTAL
     Route: 048
  5. PROPRANOLOL [Suspect]
     Active Substance: PROPRANOLOL HYDROCHLORIDE
     Indication: Product used for unknown indication
     Dosage: 400 MILLIGRAM, 1 TOTAL,400MG SINGLE
     Route: 048
  6. QUETIAPINE [Suspect]
     Active Substance: QUETIAPINE
     Indication: Major depression
     Dosage: 4 GRAM,1 TOTAL
     Route: 048

REACTIONS (11)
  - Coma [Recovering/Resolving]
  - Lung disorder [Unknown]
  - Sinus rhythm [Unknown]
  - Heart rate decreased [Unknown]
  - Blood creatine phosphokinase increased [Unknown]
  - Blood pressure systolic decreased [Unknown]
  - Intentional overdose [Unknown]
  - Toxicity to various agents [Unknown]
  - Product use issue [Unknown]
  - Drug interaction [Unknown]
  - Off label use [Unknown]
